FAERS Safety Report 14031970 (Version 4)
Quarter: 2017Q4

REPORT INFORMATION
  Report Type: Spontaneous
  Country: US (occurrence: US)
  Receive Date: 20171003
  Receipt Date: 20171120
  Transmission Date: 20180321
  Serious: Yes (Hospitalization)
  Sender: FDA-Public Use
  Company Number: US-TAIHO ONCOLOGY INC-EU-2017-01107

PATIENT
  Age: 81 Year
  Sex: Male

DRUGS (14)
  1. HYDRALAZINE [Concomitant]
     Active Substance: HYDRALAZINE HYDROCHLORIDE
     Dosage: NI
  2. IRON [Concomitant]
     Active Substance: IRON
     Dosage: NI
  3. SPIRONOLACTONE. [Concomitant]
     Active Substance: SPIRONOLACTONE
     Dosage: NI
  4. COLECALCIFEROL [Concomitant]
     Active Substance: CHOLECALCIFEROL
     Dosage: NI
  5. LONSURF [Suspect]
     Active Substance: TIPIRACIL HYDROCHLORIDE\TRIFLURIDINE
     Indication: COLON CANCER
     Route: 048
     Dates: start: 20170605
  6. CLONIDINE. [Concomitant]
     Active Substance: CLONIDINE
     Dosage: NI
  7. CALCIUM [Concomitant]
     Active Substance: CALCIUM
     Dosage: NI
  8. LISINOPRIL. [Concomitant]
     Active Substance: LISINOPRIL
     Dosage: NI
  9. LACTOBACILLUS ACIDOPHILUS/BIFIDOBACTERIUM INFANTIS [Concomitant]
     Dosage: NI
  10. FUROSEMIDE. [Concomitant]
     Active Substance: FUROSEMIDE
     Dosage: NI
  11. AMLODIPINE [Concomitant]
     Active Substance: AMLODIPINE BESYLATE
     Dosage: NI
  12. MELATONIN [Concomitant]
     Active Substance: MELATONIN
     Dosage: NI
  13. TUMS EX [Concomitant]
     Active Substance: CALCIUM CARBONATE
     Dosage: NI
  14. CRESTOR [Concomitant]
     Active Substance: ROSUVASTATIN CALCIUM
     Dosage: NI

REACTIONS (1)
  - Duodenal ulcer haemorrhage [Recovered/Resolved]

NARRATIVE: CASE EVENT DATE: 201706
